FAERS Safety Report 9538920 (Version 2)
Quarter: 2013Q4

REPORT INFORMATION
  Report Type: Spontaneous
  Country: FR (occurrence: FR)
  Receive Date: 20130920
  Receipt Date: 20131001
  Transmission Date: 20140711
  Serious: Yes (Hospitalization, Other)
  Sender: FDA-Public Use
  Company Number: FR-JNJFOC-20130909207

PATIENT
  Age: 15 Year
  Sex: Female

DRUGS (26)
  1. RISPERDAL [Suspect]
     Indication: BRIEF PSYCHOTIC DISORDER WITH MARKED STRESSORS
     Route: 048
     Dates: start: 20130731, end: 20130802
  2. RISPERDAL [Suspect]
     Indication: BRIEF PSYCHOTIC DISORDER WITH MARKED STRESSORS
     Route: 048
     Dates: start: 20130713
  3. RISPERDAL [Suspect]
     Indication: BRIEF PSYCHOTIC DISORDER WITH MARKED STRESSORS
     Route: 048
     Dates: start: 20130714
  4. RISPERDAL [Suspect]
     Indication: BRIEF PSYCHOTIC DISORDER WITH MARKED STRESSORS
     Route: 048
     Dates: start: 20130715
  5. RISPERDAL [Suspect]
     Indication: BRIEF PSYCHOTIC DISORDER WITH MARKED STRESSORS
     Route: 048
     Dates: start: 20130716
  6. RISPERDAL [Suspect]
     Indication: BRIEF PSYCHOTIC DISORDER WITH MARKED STRESSORS
     Route: 048
     Dates: start: 20130725, end: 20130730
  7. RISPERDAL [Suspect]
     Indication: BRIEF PSYCHOTIC DISORDER WITH MARKED STRESSORS
     Route: 048
     Dates: start: 20130717, end: 20130724
  8. LOXAPAC [Suspect]
     Indication: BRIEF PSYCHOTIC DISORDER WITH MARKED STRESSORS
     Dosage: 20 DOSES IN THE MORNING AND AT MIDTIME AND 25 DOSES IN THE EVENING
     Route: 048
     Dates: start: 20130801, end: 20130802
  9. LOXAPAC [Suspect]
     Indication: BRIEF PSYCHOTIC DISORDER WITH MARKED STRESSORS
     Route: 048
     Dates: start: 20130724
  10. LOXAPAC [Suspect]
     Indication: BRIEF PSYCHOTIC DISORDER WITH MARKED STRESSORS
     Route: 048
     Dates: start: 20130723
  11. LOXAPAC [Suspect]
     Indication: BRIEF PSYCHOTIC DISORDER WITH MARKED STRESSORS
     Route: 048
     Dates: start: 20130722
  12. LOXAPAC [Suspect]
     Indication: BRIEF PSYCHOTIC DISORDER WITH MARKED STRESSORS
     Route: 048
     Dates: start: 20130725
  13. LOXAPAC [Suspect]
     Indication: BRIEF PSYCHOTIC DISORDER WITH MARKED STRESSORS
     Route: 048
     Dates: start: 20130717
  14. LOXAPAC [Suspect]
     Indication: BRIEF PSYCHOTIC DISORDER WITH MARKED STRESSORS
     Route: 048
     Dates: start: 20130718
  15. LOXAPAC [Suspect]
     Indication: BRIEF PSYCHOTIC DISORDER WITH MARKED STRESSORS
     Route: 048
     Dates: start: 20130719, end: 20130721
  16. LOXAPAC [Suspect]
     Indication: BRIEF PSYCHOTIC DISORDER WITH MARKED STRESSORS
     Route: 048
     Dates: start: 20130726, end: 20130731
  17. TEGRETOL LP [Suspect]
     Indication: BRIEF PSYCHOTIC DISORDER WITH MARKED STRESSORS
     Dosage: STABLE DOSE AT 1 DOSE IN THE MORNING AND IN THE EVENING.??1-0-1
     Route: 048
     Dates: start: 20130724, end: 20130729
  18. TEGRETOL LP [Suspect]
     Indication: BRIEF PSYCHOTIC DISORDER WITH MARKED STRESSORS
     Dosage: 2-0-2
     Route: 048
     Dates: start: 20130719, end: 20130723
  19. TEGRETOL LP [Suspect]
     Indication: BRIEF PSYCHOTIC DISORDER WITH MARKED STRESSORS
     Dosage: IN THE MORNING
     Route: 048
     Dates: start: 20130718
  20. TEGRETOL LP [Suspect]
     Indication: BRIEF PSYCHOTIC DISORDER WITH MARKED STRESSORS
     Dosage: 1 DOSE IN THE MORNING
     Route: 048
     Dates: start: 20130730, end: 20130731
  21. TEGRETOL LP [Suspect]
     Indication: BRIEF PSYCHOTIC DISORDER WITH MARKED STRESSORS
     Dosage: IN THE EVENING 1.5 DOSE
     Route: 048
     Dates: start: 20130730, end: 20130731
  22. TEGRETOL LP [Suspect]
     Indication: BRIEF PSYCHOTIC DISORDER WITH MARKED STRESSORS
     Dosage: IN THE EVENING
     Route: 048
     Dates: start: 20130718
  23. TEGRETOL LP [Suspect]
     Indication: BRIEF PSYCHOTIC DISORDER WITH MARKED STRESSORS
     Dosage: 0-0-1
     Route: 048
     Dates: start: 20130717
  24. TEGRETOL [Suspect]
     Indication: BRIEF PSYCHOTIC DISORDER WITH MARKED STRESSORS
     Route: 065
     Dates: start: 20130202
  25. TEGRETOL [Suspect]
     Indication: BRIEF PSYCHOTIC DISORDER WITH MARKED STRESSORS
     Route: 065
     Dates: start: 20130201
  26. TEGRETOL [Suspect]
     Indication: BRIEF PSYCHOTIC DISORDER WITH MARKED STRESSORS
     Route: 065
     Dates: start: 20130801, end: 20130802

REACTIONS (3)
  - Catatonia [Recovered/Resolved]
  - Agitation [Recovered/Resolved]
  - Off label use [Unknown]
